FAERS Safety Report 10411946 (Version 1)
Quarter: 2014Q2

REPORT INFORMATION
  Report Type: Spontaneous
  Country: US (occurrence: None)
  Receive Date: 20140604
  Receipt Date: 20140604
  Transmission Date: 20141212
  Serious: Yes (Hospitalization)
  Sender: FDA-Public Use
  Company Number: 163-POMAL-14045696

PATIENT
  Age: 68 Year
  Sex: Male
  Weight: 113.4 kg

DRUGS (15)
  1. POMALYST (POMALIDOMIDE) (2 MILLIGRAM, CAPSULES) [Suspect]
     Indication: PLASMA CELL MYELOMA
     Dosage: 21 IN 21D
     Dates: start: 20130516
  2. OMEPRAZOLE (OMEPRAZOLE) [Concomitant]
  3. FLUCONAZOLE (FLUCONAZOLE) [Concomitant]
  4. CEFPODOXIME PROXETIL (CEFPODOXIME PROXETIL) [Concomitant]
  5. TESTOSTERONE CYPIONATE (TESTOSTERONE CIPIONATE) [Concomitant]
  6. POTASSIUM CHLORIDE (POTASSIUM CHLORIDE) [Concomitant]
  7. ZOLPIDEM TARTRATE (ZOLPIDEM TARTRATE) [Concomitant]
  8. FUROSEMIDE (FUROSEMIDE) [Concomitant]
  9. CELEBREX (CELECOXIB) [Concomitant]
  10. TRIAMCINOLONE ACETONIDE (TRIAMCINOLONE ACETONIDE) [Concomitant]
  11. VALACYCLOVIR (VALACICLOVIR HYDROCHLORIDE) [Concomitant]
  12. FERROUS GLOUCONATE (FERROUS GLUCONATE) [Concomitant]
  13. OXYCODONE/APAP (OXYCODONE/APAP) [Concomitant]
  14. FIBERCON (POLYCARBOPHIL CALCIUM) [Concomitant]
  15. VITAMIN D3 (COLECALCIFEROL) [Concomitant]

REACTIONS (1)
  - Pneumonia [None]
